FAERS Safety Report 8572101-8 (Version None)
Quarter: 2012Q3

REPORT INFORMATION
  Report Type: 
  Country: None (occurrence: None)
  Receive Date: 20120806
  Receipt Date: 20120801
  Transmission Date: 20120928
  Serious: Yes (Hospitalization)
  Sender: FDA-Public Use
  Company Number: PHEH2012US011598

PATIENT
  Sex: Female
  Weight: 84.807 kg

DRUGS (11)
  1. MECLIZINE [Concomitant]
     Indication: NAUSEA
     Dosage: 12.5 MG, PRN
     Route: 048
  2. NEURONTIN [Concomitant]
     Dosage: 300 MG, QID
     Route: 048
  3. BACLOFEN [Concomitant]
     Dosage: 10 MG, TID
     Route: 048
  4. SCOPOLAMINE [Concomitant]
     Dosage: 1.5 MG, Q72H
     Route: 062
  5. FAMPRIDINE [Concomitant]
     Dosage: 10 MG, Q12H
     Route: 048
  6. TOPIRAMATE [Concomitant]
     Dosage: 25 MG, QID
     Route: 048
  7. ZOMIG [Concomitant]
     Indication: MIGRAINE
     Dosage: 1 DF, PRN
  8. GILENYA [Suspect]
     Indication: MULTIPLE SCLEROSIS
     Dosage: 0.5 MG, QD
     Route: 048
     Dates: start: 20120606
  9. ONDANSETRON [Concomitant]
     Indication: NAUSEA
     Dosage: 4 MG, PRN
     Route: 048
  10. CELEXA [Concomitant]
     Dosage: 20 MG, QD
     Route: 048
  11. PROVIGIL [Concomitant]
     Dosage: 200 MG, QD
     Route: 048

REACTIONS (4)
  - ELECTROCARDIOGRAM POOR R-WAVE PROGRESSION [None]
  - SINUS BRADYCARDIA [None]
  - HEADACHE [None]
  - ELECTROCARDIOGRAM T WAVE INVERSION [None]
